FAERS Safety Report 9038267 (Version 1)
Quarter: 2013Q1

REPORT INFORMATION
  Report Type: Spontaneous
  Country: US (occurrence: US)
  Receive Date: 20130129
  Receipt Date: 20130129
  Transmission Date: 20140127
  Serious: No
  Sender: FDA-Public Use
  Company Number: US-GLAXOSMITHKLINE-A1002140A

PATIENT
  Sex: Male

DRUGS (5)
  1. BUPROPION [Suspect]
     Indication: DEPRESSION
     Dosage: 150MG AT NIGHT
     Route: 048
     Dates: start: 20120924, end: 20121007
  2. WELLBUTRIN XL [Suspect]
     Indication: DEPRESSION
     Dosage: 300MG PER DAY
     Route: 048
     Dates: start: 20121008
  3. XANAX [Concomitant]
  4. LIPITOR [Concomitant]
  5. ANTI-HYPERTENSIVE [Concomitant]

REACTIONS (5)
  - Depression [Not Recovered/Not Resolved]
  - Sleep disorder [Recovered/Resolved]
  - Adverse event [Recovered/Resolved]
  - Drug ineffective [Not Recovered/Not Resolved]
  - Depressed mood [Not Recovered/Not Resolved]
